FAERS Safety Report 9221774 (Version 2)
Quarter: 2013Q2

REPORT INFORMATION
  Report Type: Report from Study
  Country: US (occurrence: US)
  Receive Date: 20130410
  Receipt Date: 20130624
  Transmission Date: 20140414
  Serious: Yes (Life-Threatening, Hospitalization)
  Sender: FDA-Public Use
  Company Number: US-JNJFOC-20130401435

PATIENT
  Age: 19 Year
  Sex: Female
  Weight: 55.2 kg

DRUGS (7)
  1. ACETAMINOPHEN [Suspect]
     Indication: PRODUCT USED FOR UNKNOWN INDICATION
     Route: 048
     Dates: start: 20130331
  2. IBUPROFEN [Suspect]
     Indication: PRODUCT USED FOR UNKNOWN INDICATION
     Route: 048
     Dates: start: 20130331
  3. ATENOLOL [Suspect]
     Indication: PRODUCT USED FOR UNKNOWN INDICATION
     Route: 048
     Dates: start: 20130331
  4. NIFEDIPINE [Suspect]
     Indication: PRODUCT USED FOR UNKNOWN INDICATION
     Route: 048
     Dates: start: 20130331
  5. METHYLPHENIDATE [Concomitant]
  6. ABILIFY [Concomitant]
     Route: 065
  7. LAMOTRIGINE [Concomitant]
     Route: 065

REACTIONS (9)
  - Overdose [Recovered/Resolved]
  - Ischaemic hepatitis [Recovered/Resolved]
  - Hypotension [Recovered/Resolved]
  - Intentional self-injury [Recovered/Resolved]
  - Bradycardia [Recovered/Resolved]
  - Aspartate aminotransferase increased [Recovered/Resolved]
  - Alanine aminotransferase increased [Recovered/Resolved]
  - Abdominal pain [Recovered/Resolved]
  - Vomiting [Recovered/Resolved]
